FAERS Safety Report 11750280 (Version 3)
Quarter: 2016Q4

REPORT INFORMATION
  Report Type: Spontaneous
  Country: DK (occurrence: DK)
  Receive Date: 20151118
  Receipt Date: 20161028
  Transmission Date: 20170206
  Serious: Yes (Hospitalization)
  Sender: FDA-Public Use
  Company Number: DK-PFIZER INC-2015388839

PATIENT
  Age: 44 Year
  Sex: Female
  Weight: 53 kg

DRUGS (1)
  1. EFEXOR DEPOT [Suspect]
     Active Substance: VENLAFAXINE HYDROCHLORIDE
     Indication: DEPRESSION
     Dosage: 37.5 MG, 1X/DAY
     Route: 048
     Dates: start: 20130110, end: 20130110

REACTIONS (18)
  - Visual impairment [Recovering/Resolving]
  - Chest discomfort [Recovering/Resolving]
  - Tremor [Recovering/Resolving]
  - Anxiety [Unknown]
  - Tinnitus [Recovering/Resolving]
  - Paraesthesia [Recovering/Resolving]
  - Nausea [Unknown]
  - Throat tightness [Recovering/Resolving]
  - Skin disorder [Recovering/Resolving]
  - Headache [Recovered/Resolved]
  - Palpitations [Recovering/Resolving]
  - Depression [Not Recovered/Not Resolved]
  - Spinal pain [Recovering/Resolving]
  - Abdominal pain [Recovering/Resolving]
  - Panic attack [Recovering/Resolving]
  - Dizziness [Recovering/Resolving]
  - Vomiting [Recovered/Resolved]
  - Condition aggravated [Not Recovered/Not Resolved]

NARRATIVE: CASE EVENT DATE: 20130110
